FAERS Safety Report 5290118-6 (Version None)
Quarter: 2007Q1

REPORT INFORMATION
  Report Type: 
  Country: None (occurrence: None)
  Receive Date: 20070330
  Receipt Date: 20070319
  Transmission Date: 20070707
  Serious: Yes (Other)
  Sender: FDA-Public Use
  Company Number: 16000

PATIENT
  Age: 47 Year
  Sex: Female

DRUGS (4)
  1. FLUOROURACIL [Suspect]
     Indication: BREAST CANCER
     Dates: start: 20020601
  2. METHOTREXATE [Suspect]
     Indication: BREAST CANCER
  3. CYCLOPHOSPHAMIDE [Suspect]
     Indication: BREAST CANCER
     Dates: start: 20020601
  4. ANTIBIOTIC [Concomitant]

REACTIONS (2)
  - PARATRACHEAL LYMPHADENOPATHY [None]
  - PULMONARY SARCOIDOSIS [None]
